FAERS Safety Report 6376473-4 (Version None)
Quarter: 2009Q3

REPORT INFORMATION
  Report Type: 
  Country: None (occurrence: None)
  Receive Date: 20090922
  Receipt Date: 20090922
  Transmission Date: 20100115
  Serious: Yes (Other)
  Sender: FDA-Public Use
  Company Number: None

PATIENT
  Age: 68 Year
  Sex: Male
  Weight: 75.7507 kg

DRUGS (1)
  1. TRAVATAN [Suspect]
     Indication: GLAUCOMA
     Dosage: ONE DROP OU NIGHTLY OPHTHALMIC
     Route: 047
     Dates: start: 20090201, end: 20090921

REACTIONS (1)
  - HAIR GROWTH ABNORMAL [None]
